FAERS Safety Report 8540404-9 (Version None)
Quarter: 2012Q3

REPORT INFORMATION
  Report Type: 
  Country: None (occurrence: None)
  Receive Date: 20120726
  Receipt Date: 20110913
  Transmission Date: 20120928
  Serious: No
  Sender: FDA-Public Use
  Company Number: US-ASTRAZENECA-2011SE21521

PATIENT
  Age: 37 Year
  Sex: Male
  Weight: 81.6 kg

DRUGS (4)
  1. DEPAKOTE [Concomitant]
  2. LITHIUM CARBONATE [Concomitant]
  3. SEROQUEL [Suspect]
     Indication: BIPOLAR I DISORDER
     Route: 048
     Dates: start: 20010101
  4. ATIVAN [Concomitant]

REACTIONS (6)
  - ABDOMINAL DISCOMFORT [None]
  - GASTROENTERITIS VIRAL [None]
  - MALAISE [None]
  - INSOMNIA [None]
  - DRUG DOSE OMISSION [None]
  - OFF LABEL USE [None]
